FAERS Safety Report 11524155 (Version 1)
Quarter: 2015Q3

REPORT INFORMATION
  Report Type: Report from Study
  Country: US (occurrence: US)
  Receive Date: 20150918
  Receipt Date: 20150918
  Transmission Date: 20151125
  Serious: Yes (Death)
  Sender: FDA-Public Use
  Company Number: US-BAYER-2015-420188

PATIENT
  Age: 1 Year
  Sex: Male

DRUGS (1)
  1. BETASERON [Suspect]
     Active Substance: INTERFERON BETA-1B
     Dosage: 8 MIU, QOD
     Route: 064
     Dates: start: 20060807, end: 20120724

REACTIONS (2)
  - Foetal exposure during pregnancy [None]
  - Cardiomyopathy [Fatal]

NARRATIVE: CASE EVENT DATE: 201412
